FAERS Safety Report 9372998 (Version 1)
Quarter: 2013Q2

REPORT INFORMATION
  Report Type: Spontaneous
  Country: CA (occurrence: None)
  Receive Date: 20130624
  Receipt Date: 20130624
  Transmission Date: 20140414
  Serious: Yes (Other)
  Sender: FDA-Public Use
  Company Number: SYM-2013-04899

PATIENT
  Age: 58 Year
  Sex: Female

DRUGS (6)
  1. EFUDEX [Suspect]
     Dosage: ONCE A DAY, TOPICAL
     Route: 061
     Dates: start: 20130315, end: 20130409
  2. AMOXICILLIN (AMOXICILLIN) (AMOXICILLIN) [Concomitant]
  3. ACETYLSALICYCLIC ACID (ACETYLSALICYCLIC ACID) (ACETYLSALICYCLIC ACID) [Concomitant]
  4. CALCIUM (CALCIUM) (CALCIUM) [Concomitant]
  5. VITAMINE D3 (COLECALCIFEROL) (COLECALCIFEROL) [Concomitant]
  6. DICLOFENAC (DICLOFENAC) (5 PERCENT, GEL) (DICLOFENAC) [Concomitant]

REACTIONS (5)
  - Malaise [None]
  - Diarrhoea [None]
  - Nausea [None]
  - Fatigue [None]
  - Cheilitis [None]
